FAERS Safety Report 7014107-6 (Version None)
Quarter: 2010Q3

REPORT INFORMATION
  Report Type: 
  Country: None (occurrence: None)
  Receive Date: 20100927
  Receipt Date: 20100917
  Transmission Date: 20110219
  Serious: Yes (Hospitalization)
  Sender: FDA-Public Use
  Company Number: US-US-EMD SERONO, INC.-7018068

PATIENT
  Sex: Female
  Weight: 113 kg

DRUGS (8)
  1. REBIF [Suspect]
     Indication: RELAPSING-REMITTING MULTIPLE SCLEROSIS
     Route: 058
     Dates: start: 20030211
  2. GLYBURIDE [Concomitant]
     Indication: DIABETES MELLITUS
  3. LISINOPRIL [Concomitant]
     Indication: HYPERTENSION
  4. HYDROCHLOROTHIAZIDE [Concomitant]
     Indication: HYPERTENSION
  5. METOPROLOL TARTRATE [Concomitant]
     Indication: HYPERTENSION
  6. DIVALPROEX SODIUM [Concomitant]
     Indication: CONVULSION
  7. NEURONTIN [Concomitant]
     Indication: CONVULSION
  8. IBUPROFEN [Concomitant]
     Indication: PREMEDICATION

REACTIONS (9)
  - FATIGUE [None]
  - GASTRIC INFECTION [None]
  - GASTROENTERITIS VIRAL [None]
  - HERNIA [None]
  - HYPOAESTHESIA [None]
  - INJECTION SITE ERYTHEMA [None]
  - INJECTION SITE PAIN [None]
  - LIMB DISCOMFORT [None]
  - PAIN [None]
